FAERS Safety Report 7328279-7 (Version None)
Quarter: 2011Q1

REPORT INFORMATION
  Report Type: 
  Country: None (occurrence: None)
  Receive Date: 20110303
  Receipt Date: 20110224
  Transmission Date: 20110831
  Serious: Yes (Other)
  Sender: FDA-Public Use
  Company Number: US-US-EMD SERONO, INC.-233747J08USA

PATIENT
  Sex: Female

DRUGS (1)
  1. REBIF [Suspect]
     Indication: MULTIPLE SCLEROSIS
     Route: 058
     Dates: start: 20080116

REACTIONS (5)
  - RESPIRATORY TRACT INFECTION [None]
  - SCAR [None]
  - ABDOMINAL HERNIA [None]
  - SEROMA [None]
  - HIATUS HERNIA [None]
